FAERS Safety Report 8344331-1 (Version None)
Quarter: 2012Q2

REPORT INFORMATION
  Report Type: 
  Country: None (occurrence: None)
  Receive Date: 20120508
  Receipt Date: 20120503
  Transmission Date: 20120825
  Serious: Yes (Other)
  Sender: FDA-Public Use
  Company Number: GB-PFIZER INC-2012109441

PATIENT
  Sex: Female

DRUGS (2)
  1. CYTOTEC [Suspect]
     Indication: LABOUR INDUCTION
  2. CYTOTEC [Suspect]
     Indication: OFF LABEL USE
     Route: 050

REACTIONS (2)
  - STILLBIRTH [None]
  - BRAIN INJURY [None]
